FAERS Safety Report 4306644-X (Version None)
Quarter: 2004Q1

REPORT INFORMATION
  Report Type: 
  Country: None (occurrence: None)
  Receive Date: 20040225
  Receipt Date: 20031013
  Transmission Date: 20041129
  Serious: No
  Sender: FDA-Public Use
  Company Number: US-BRISTOL-MYERS SQUIBB COMPANY-12433447

PATIENT
  Age: 59 Year
  Sex: Female
  Weight: 107 kg

DRUGS (1)
  1. EXCEDRIN ES TABS [Suspect]
     Indication: MIGRAINE
     Route: 048
     Dates: start: 20031013, end: 20031013

REACTIONS (1)
  - DISSOCIATION [None]
